FAERS Safety Report 25471013 (Version 2)
Quarter: 2025Q3

REPORT INFORMATION
  Report Type: Spontaneous
  Country: AU (occurrence: AU)
  Receive Date: 20250624
  Receipt Date: 20250704
  Transmission Date: 20251021
  Serious: Yes (Other)
  Sender: SERVIER
  Company Number: AU-SERVIER-S25008472

PATIENT

DRUGS (1)
  1. VORASIDENIB [Suspect]
     Active Substance: VORASIDENIB
     Indication: Malignant oligodendroglioma
     Dosage: 40 MG, QD
     Route: 048
     Dates: start: 20241205, end: 20250326

REACTIONS (1)
  - Malignant neoplasm progression [Unknown]

NARRATIVE: CASE EVENT DATE: 20250325
